FAERS Safety Report 8323190-7 (Version None)
Quarter: 2012Q2

REPORT INFORMATION
  Report Type: 
  Country: None (occurrence: None)
  Receive Date: 20120430
  Receipt Date: 20120419
  Transmission Date: 20120825
  Serious: Yes (Other)
  Sender: FDA-Public Use
  Company Number: US-ASTRAZENECA-2011SE00160

PATIENT
  Age: 85 Year
  Sex: Female

DRUGS (6)
  1. PULMICORT [Suspect]
     Indication: ASTHMA PROPHYLAXIS
     Route: 055
  2. CRESTOR [Suspect]
     Route: 048
  3. SYMBICORT [Suspect]
     Route: 055
  4. PREDNISONE [Concomitant]
  5. ADVAIR DISKUS 100/50 [Concomitant]
  6. ACCOLATE [Suspect]
     Route: 048

REACTIONS (18)
  - PAIN [None]
  - CONFUSIONAL STATE [None]
  - DIABETES MELLITUS [None]
  - WHEEZING [None]
  - ADVERSE EVENT [None]
  - NEURALGIA [None]
  - GASTRIC DISORDER [None]
  - COUGH [None]
  - INTENTIONAL DRUG MISUSE [None]
  - DYSPHONIA [None]
  - FALL [None]
  - SPINAL FRACTURE [None]
  - TOOTH ABSCESS [None]
  - DRUG INTOLERANCE [None]
  - OFF LABEL USE [None]
  - ASTHMA [None]
  - HEARING IMPAIRED [None]
  - INCORRECT DOSE ADMINISTERED [None]
